FAERS Safety Report 12508676 (Version 1)
Quarter: 2016Q2

REPORT INFORMATION
  Report Type: Spontaneous
  Country: KR (occurrence: KR)
  Receive Date: 20160629
  Receipt Date: 20160629
  Transmission Date: 20160815
  Serious: Yes (Death)
  Sender: FDA-Public Use
  Company Number: KR-CELGENEUS-286-50794-13034195

PATIENT
  Age: 66 Year
  Sex: Female
  Weight: 67 kg

DRUGS (9)
  1. MAGMIL [Concomitant]
     Active Substance: MAGNESIUM HYDROXIDE
     Indication: CONSTIPATION PROPHYLAXIS
     Dosage: .1 MILLIGRAM
     Route: 048
     Dates: start: 20130226, end: 20130304
  2. TRANEXAMIC ACID. [Concomitant]
     Active Substance: TRANEXAMIC ACID
     Route: 048
     Dates: start: 20130321, end: 20130323
  3. TRANEXAMIC ACID. [Concomitant]
     Active Substance: TRANEXAMIC ACID
     Indication: COAGULOPATHY
     Route: 048
     Dates: start: 20130314, end: 20130320
  4. VIDAZA [Suspect]
     Active Substance: AZACITIDINE
     Route: 065
     Dates: start: 20130226, end: 20130304
  5. RAMOSETRON [Concomitant]
     Active Substance: RAMOSETRON HYDROCHLORIDE
     Indication: PROPHYLAXIS OF NAUSEA AND VOMITING
     Route: 048
     Dates: start: 20130226, end: 20130304
  6. TRANEXAMIC ACID. [Concomitant]
     Active Substance: TRANEXAMIC ACID
     Dosage: 5 MILLIGRAM
     Route: 048
     Dates: start: 20130323, end: 20130325
  7. PLATELETS [Concomitant]
     Active Substance: HUMAN PLATELET, ALLOGENIC
     Indication: PLATELET COUNT DECREASED
     Route: 065
     Dates: start: 20130214
  8. VIDAZA [Suspect]
     Active Substance: AZACITIDINE
     Indication: MYELODYSPLASTIC SYNDROME
     Route: 065
     Dates: start: 20120827
  9. TRANEXAMIC ACID. [Concomitant]
     Active Substance: TRANEXAMIC ACID
     Dosage: 500 MILLIGRAM
     Route: 041
     Dates: start: 20130325, end: 20130325

REACTIONS (1)
  - Cerebral haemorrhage [Fatal]

NARRATIVE: CASE EVENT DATE: 20130323
